FAERS Safety Report 10098869 (Version 1)
Quarter: 2014Q2

REPORT INFORMATION
  Report Type: Spontaneous
  Country: US (occurrence: None)
  Receive Date: 20140422
  Receipt Date: 20140422
  Transmission Date: 20141212
  Serious: Yes (Disabling)
  Sender: FDA-Public Use
  Company Number: None

PATIENT
  Age: 78 Year
  Sex: Female
  Weight: 57.15 kg

DRUGS (15)
  1. RECLAST [Suspect]
  2. PLAVIX [Concomitant]
  3. IC-METOPROLOL [Concomitant]
  4. ASPIRIN [Concomitant]
  5. AMLODIPINE [Concomitant]
  6. CRESTOR [Concomitant]
  7. CILESTAZOL [Concomitant]
  8. LEVATHXIN [Concomitant]
  9. CO Q10 [Concomitant]
  10. CALCIUM [Concomitant]
  11. D 1000 [Concomitant]
  12. B COMPLEX [Concomitant]
  13. E 400 10 [Concomitant]
  14. FISH OIL [Suspect]
  15. MULTI VIT [Concomitant]

REACTIONS (8)
  - Toothache [None]
  - Jaw disorder [None]
  - Fatigue [None]
  - Myalgia [None]
  - Bone pain [None]
  - Burning sensation [None]
  - Blood pressure increased [None]
  - Back pain [None]
